FAERS Safety Report 23772591 (Version 1)
Quarter: 2024Q2

REPORT INFORMATION
  Report Type: Spontaneous
  Country: JP (occurrence: JP)
  Receive Date: 20240423
  Receipt Date: 20240423
  Transmission Date: 20240716
  Serious: Yes (Other)
  Sender: FDA-Public Use
  Company Number: JP-CHEPLA-2024004767

PATIENT
  Age: 69 Year
  Sex: Female

DRUGS (1)
  1. VALGANCICLOVIR [Suspect]
     Active Substance: VALGANCICLOVIR
     Indication: Cytomegalovirus infection

REACTIONS (3)
  - Haemophagocytic lymphohistiocytosis [Unknown]
  - Epstein Barr virus positive mucocutaneous ulcer [Recovering/Resolving]
  - Off label use [Recovered/Resolved]
